FAERS Safety Report 6966269-4 (Version None)
Quarter: 2010Q3

REPORT INFORMATION
  Report Type: 
  Country: None (occurrence: None)
  Receive Date: 20100903
  Receipt Date: 20100823
  Transmission Date: 20110219
  Serious: Yes (Hospitalization, Other)
  Sender: FDA-Public Use
  Company Number: US-ELI_LILLY_AND_COMPANY-US201008007462

PATIENT
  Sex: Female

DRUGS (5)
  1. FORTEO [Suspect]
     Indication: OSTEOPOROSIS
     Dosage: 20 UG, DAILY (1/D)
     Route: 065
  2. WELLBUTRIN [Concomitant]
     Dosage: UNK, DAILY (1/D)
  3. VITAMIN B-12 [Concomitant]
     Dosage: UNK, DAILY (1/D)
  4. ASCORBIC ACID [Concomitant]
     Dosage: UNK, DAILY (1/D)
  5. CALCIUM WITH VITAMIN D [Concomitant]
     Dosage: UNK, 2/D

REACTIONS (2)
  - ROAD TRAFFIC ACCIDENT [None]
  - STRESS FRACTURE [None]
